FAERS Safety Report 24693060 (Version 1)
Quarter: 2024Q4

REPORT INFORMATION
  Report Type: Spontaneous
  Country: US (occurrence: US)
  Receive Date: 20241203
  Receipt Date: 20241203
  Transmission Date: 20250115
  Serious: No
  Sender: INSUD PHARMA
  Company Number: US-INSUD PHARMA-2411US09018

PATIENT

DRUGS (1)
  1. SLYND [Suspect]
     Active Substance: DROSPIRENONE
     Indication: Product used for unknown indication
     Dosage: UNKNOWN
     Route: 048

REACTIONS (3)
  - Vaginal discharge [Not Recovered/Not Resolved]
  - Amenorrhoea [Unknown]
  - Menstruation delayed [Unknown]

NARRATIVE: CASE EVENT DATE: 20241119
